FAERS Safety Report 5242466-3 (Version None)
Quarter: 2007Q1

REPORT INFORMATION
  Report Type: 
  Country: None (occurrence: None)
  Receive Date: 20070214
  Receipt Date: 20070202
  Transmission Date: 20070707
  Serious: Yes (Hospitalization)
  Sender: FDA-Public Use
  Company Number: 2007SP000875

PATIENT
  Age: 42 Year
  Sex: Male

DRUGS (2)
  1. PEG-INTRON [Suspect]
     Indication: HEPATITIS C
     Dosage: SC
     Route: 058
     Dates: start: 20061027
  2. RIBAVIRIN [Suspect]
     Indication: HEPATITIS C
     Dosage: PO
     Route: 048
     Dates: start: 20061027

REACTIONS (31)
  - ABASIA [None]
  - ANAEMIA [None]
  - ANOREXIA [None]
  - APHASIA [None]
  - APHONIA [None]
  - ASTHENIA [None]
  - BACK PAIN [None]
  - BALANCE DISORDER [None]
  - BLOOD PRESSURE INCREASED [None]
  - CHEST PAIN [None]
  - CHILLS [None]
  - DEHYDRATION [None]
  - DEPRESSION [None]
  - DRUG WITHDRAWAL SYNDROME [None]
  - DRY THROAT [None]
  - DYSPHAGIA [None]
  - DYSPNOEA [None]
  - DYSPNOEA EXERTIONAL [None]
  - FATIGUE [None]
  - HALLUCINATION [None]
  - HALLUCINATION, VISUAL [None]
  - HYPERHIDROSIS [None]
  - INJECTION SITE BRUISING [None]
  - INSOMNIA [None]
  - LYMPHADENOPATHY [None]
  - PAIN [None]
  - RENAL FAILURE [None]
  - RENAL PAIN [None]
  - SCAB [None]
  - VISION BLURRED [None]
  - WEIGHT DECREASED [None]
